FAERS Safety Report 10084560 (Version 1)
Quarter: 2014Q2

REPORT INFORMATION
  Report Type: Spontaneous
  Country: CM (occurrence: CM)
  Receive Date: 20140417
  Receipt Date: 20140417
  Transmission Date: 20141212
  Serious: Yes (Hospitalization, Other)
  Sender: FDA-Public Use
  Company Number: CM-009507513-1404CMR009462

PATIENT
  Age: 32 Year
  Sex: Male
  Weight: 70 kg

DRUGS (6)
  1. MECTIZAN [Suspect]
     Indication: FILARIASIS LYMPHATIC
     Dosage: 4 DF, UNK
     Route: 048
     Dates: start: 20130627
  2. MECTIZAN [Suspect]
     Indication: ONCHOCERCIASIS
  3. MECTIZAN [Suspect]
     Indication: FILARIASIS
  4. ALBENDAZOLE [Suspect]
     Indication: FILARIASIS LYMPHATIC
     Dosage: 1 DF, UNK
     Route: 048
     Dates: start: 20130627
  5. ALBENDAZOLE [Suspect]
     Indication: ONCHOCERCIASIS
  6. ALBENDAZOLE [Suspect]
     Indication: FILARIASIS

REACTIONS (6)
  - Depressed level of consciousness [Recovered/Resolved]
  - Conjunctival haemorrhage [Recovered/Resolved]
  - Arthralgia [Recovered/Resolved]
  - Myalgia [Recovered/Resolved]
  - Pyrexia [Recovered/Resolved]
  - Encephalopathy [Recovered/Resolved]
